FAERS Safety Report 24952729 (Version 1)
Quarter: 2025Q1

REPORT INFORMATION
  Report Type: Spontaneous
  Country: PT (occurrence: PT)
  Receive Date: 20250211
  Receipt Date: 20250211
  Transmission Date: 20250408
  Serious: Yes (Hospitalization, Other)
  Sender: AUROBINDO
  Company Number: PT-MLMSERVICE-20250122-PI370022-00270-1

PATIENT
  Age: 74 Year
  Sex: Male

DRUGS (14)
  1. PREDNISOLONE [Suspect]
     Active Substance: PREDNISOLONE
     Indication: VEXAS syndrome
     Dosage: 7.5 MILLIGRAM, ONCE A DAY
     Dates: start: 2022, end: 2022
  2. PREDNISOLONE [Suspect]
     Active Substance: PREDNISOLONE
     Dosage: 12.5 MILLIGRAM, ONCE A DAY
     Dates: start: 2022, end: 2022
  3. PREDNISOLONE [Suspect]
     Active Substance: PREDNISOLONE
     Dates: start: 2022, end: 2022
  4. PREDNISOLONE [Suspect]
     Active Substance: PREDNISOLONE
     Dosage: 15 MILLIGRAM, ONCE A DAY (FOR 3 WEEKS BY HIS GENERAL PRACTITIONER)
     Route: 065
     Dates: start: 202201, end: 2022
  5. PREDNISOLONE [Suspect]
     Active Substance: PREDNISOLONE
     Dosage: 20 MILLIGRAM, ONCE A DAY
     Dates: start: 202204, end: 2022
  6. PREDNISOLONE [Suspect]
     Active Substance: PREDNISOLONE
     Dosage: 40 MILLIGRAM, ONCE A DAY
     Dates: start: 202206
  7. PREDNISOLONE [Suspect]
     Active Substance: PREDNISOLONE
     Dosage: 1 MG/KG/DAY
     Dates: start: 202208
  8. METHYLPREDNISOLONE [Suspect]
     Active Substance: METHYLPREDNISOLONE
     Indication: VEXAS syndrome
     Dosage: 1 GRAM, ONCE A DAY (PULSE THERAPY)
     Route: 042
     Dates: start: 202208, end: 202208
  9. DICLOFENAC [Concomitant]
     Active Substance: DICLOFENAC
     Indication: Product used for unknown indication
     Dosage: 50 MILLIGRAM, TWO TIMES A DAY (50?75 MG TWICE DAILY)
     Route: 065
  10. DICLOFENAC [Concomitant]
     Active Substance: DICLOFENAC
     Dosage: 75 MILLIGRAM, TWO TIMES A DAY (50?75 MG TWICE DAILY)
     Route: 065
  11. RIVAROXABAN [Concomitant]
     Active Substance: RIVAROXABAN
     Indication: Thrombosis prophylaxis
     Route: 065
  12. RUXOLITINIB [Concomitant]
     Active Substance: RUXOLITINIB
     Indication: Product used for unknown indication
     Dosage: 15 MILLIGRAM, TWO TIMES A DAY
     Route: 065
  13. RUXOLITINIB [Concomitant]
     Active Substance: RUXOLITINIB
     Dosage: 25 MILLIGRAM, TWO TIMES A DAY
     Route: 065
  14. DARBEPOETIN ALFA [Concomitant]
     Active Substance: DARBEPOETIN ALFA
     Indication: Product used for unknown indication
     Dosage: 300 MICROGRAM, EVERY WEEK
     Route: 065

REACTIONS (9)
  - Diverticulitis [Unknown]
  - Pneumonia [Unknown]
  - Tooth abscess [Unknown]
  - Respiratory syncytial virus infection [Unknown]
  - Oral candidiasis [Unknown]
  - Viral upper respiratory tract infection [Unknown]
  - Abscess [Unknown]
  - Osteoporotic fracture [Unknown]
  - Spinal fracture [Unknown]

NARRATIVE: CASE EVENT DATE: 20220101
